FAERS Safety Report 7062516-1 (Version None)
Quarter: 2010Q4

REPORT INFORMATION
  Report Type: 
  Country: None (occurrence: None)
  Receive Date: 20101026
  Receipt Date: 20091106
  Transmission Date: 20110411
  Serious: Yes (Other)
  Sender: FDA-Public Use
  Company Number: US-PFIZER INC-2009294424

PATIENT
  Age: 84 Year
  Sex: Male

DRUGS (3)
  1. LIPITOR [Suspect]
  2. FUROSEMIDE [Suspect]
  3. FEBUXOSTAT [Suspect]
     Dosage: UNK

REACTIONS (1)
  - MUSCLE SPASMS [None]
